FAERS Safety Report 25710902 (Version 1)
Quarter: 2025Q3

REPORT INFORMATION
  Report Type: Spontaneous
  Country: US (occurrence: US)
  Receive Date: 20250821
  Receipt Date: 20250821
  Transmission Date: 20251020
  Serious: Yes (Other)
  Sender: CROWN LABORATORIES, INC.
  Company Number: US-Crown Laboratories, Inc.-2182934

PATIENT
  Age: 36 Year
  Sex: Female
  Weight: 61.364 kg

DRUGS (1)
  1. PANOXYL ACNE BANISHING BODY (SPRAY) [Suspect]
     Active Substance: SALICYLIC ACID

REACTIONS (3)
  - Throat irritation [Not Recovered/Not Resolved]
  - Dysphonia [Not Recovered/Not Resolved]
  - Cough [Not Recovered/Not Resolved]

NARRATIVE: CASE EVENT DATE: 20250722
